FAERS Safety Report 10899884 (Version 3)
Quarter: 2015Q2

REPORT INFORMATION
  Report Type: Spontaneous
  Country: JP (occurrence: JP)
  Receive Date: 20150310
  Receipt Date: 20150623
  Transmission Date: 20150821
  Serious: Yes (Life-Threatening, Other)
  Sender: FDA-Public Use
  Company Number: JP-GLAXOSMITHKLINE-JP2015JPN029217

PATIENT
  Age: 62 Year
  Sex: Male
  Weight: 50 kg

DRUGS (5)
  1. WARFARIN [Suspect]
     Active Substance: WARFARIN
     Indication: THROMBOSIS PROPHYLAXIS
     Dosage: 4.25 MG, QD
     Route: 048
     Dates: start: 20121127, end: 20130317
  2. URSO [Concomitant]
     Active Substance: URSODIOL
     Dosage: UNK
     Dates: start: 20130412
  3. VOTRIENT [Suspect]
     Active Substance: PAZOPANIB HYDROCHLORIDE
     Indication: LIPOSARCOMA
     Dosage: 800 MG, QD
     Route: 048
     Dates: start: 20130305
  4. MYONAL [Concomitant]
     Active Substance: EPERISONE HYDROCHLORIDE
     Dosage: UNK
     Dates: start: 20130412
  5. CHINESE MEDICINE [Concomitant]
     Active Substance: UNSPECIFIED INGREDIENT
     Dosage: UNK
     Dates: start: 20121127

REACTIONS (3)
  - Haematochezia [Recovered/Resolved]
  - Prothrombin time ratio increased [Recovered/Resolved]
  - Gingival bleeding [Recovered/Resolved]

NARRATIVE: CASE EVENT DATE: 20130310
